FAERS Safety Report 7319552-7 (Version None)
Quarter: 2011Q1

REPORT INFORMATION
  Report Type: 
  Country: None (occurrence: None)
  Receive Date: 20110228
  Receipt Date: 20100518
  Transmission Date: 20110831
  Serious: No
  Sender: FDA-Public Use
  Company Number: A0860224A

PATIENT
  Age: 61 Year
  Sex: Male

DRUGS (3)
  1. LAMICTAL [Suspect]
     Route: 048
     Dates: start: 20020101
  2. KEPPRA [Concomitant]
  3. COREG [Concomitant]

REACTIONS (3)
  - LYMPHADENOPATHY [None]
  - ERYTHEMA [None]
  - SWELLING FACE [None]
